FAERS Safety Report 9465333 (Version 2)
Quarter: 2013Q3

REPORT INFORMATION
  Report Type: Report from Study
  Country: NL (occurrence: NL)
  Receive Date: 20130820
  Receipt Date: 20130824
  Transmission Date: 20140515
  Serious: Yes (Hospitalization)
  Sender: FDA-Public Use
  Company Number: NL-ROCHE-1263948

PATIENT
  Age: 19 Year
  Sex: Female
  Weight: 52 kg

DRUGS (2)
  1. BEVACIZUMAB [Suspect]
     Indication: BRAIN NEOPLASM MALIGNANT
     Dosage: LAST DOSE PRIOR TO SAE WAS TAKEN ON 31/JUL/2013.
     Route: 042
     Dates: start: 20130703
  2. DEXAMETHASONE [Concomitant]
     Indication: GLIOBLASTOMA MULTIFORME
     Route: 048
     Dates: start: 20130625

REACTIONS (1)
  - Convulsion [Recovered/Resolved with Sequelae]
